FAERS Safety Report 6993325-7 (Version None)
Quarter: 2010Q3

REPORT INFORMATION
  Report Type: 
  Country: None (occurrence: None)
  Receive Date: 20100917
  Receipt Date: 20100224
  Transmission Date: 20110219
  Serious: No
  Sender: FDA-Public Use
  Company Number: US-ASTRAZENECA-2010SE08224

PATIENT
  Sex: Male

DRUGS (3)
  1. SEROQUEL [Suspect]
     Indication: BIPOLAR I DISORDER
     Route: 048
     Dates: start: 20091201
  2. SEROQUEL [Suspect]
     Indication: HALLUCINATION, AUDITORY
     Route: 048
     Dates: start: 20091201
  3. CLOZARIL [Suspect]
     Dates: start: 19890101, end: 20090101

REACTIONS (4)
  - EMOTIONAL DISORDER [None]
  - MUSCLE TWITCHING [None]
  - PALPITATIONS [None]
  - VITREOUS FLOATERS [None]
